FAERS Safety Report 12124267 (Version 2)
Quarter: 2016Q1

REPORT INFORMATION
  Report Type: Spontaneous
  Country: JP (occurrence: JP)
  Receive Date: 20160229
  Receipt Date: 20160318
  Transmission Date: 20160526
  Serious: Yes (Other)
  Sender: FDA-Public Use
  Company Number: JP-AMGEN-JPNSP2016024453

PATIENT

DRUGS (1)
  1. PRALIA [Suspect]
     Active Substance: DENOSUMAB
     Indication: OSTEOPOROSIS
     Dosage: 60 MG, TWICE
     Route: 065
     Dates: start: 201507

REACTIONS (3)
  - Metastases to bone [Not Recovered/Not Resolved]
  - Hepatic cancer [Unknown]
  - Back pain [Not Recovered/Not Resolved]
